FAERS Safety Report 10077357 (Version 2)
Quarter: 2014Q2

REPORT INFORMATION
  Report Type: Spontaneous
  Country: US (occurrence: US)
  Receive Date: 20140414
  Receipt Date: 20140414
  Transmission Date: 20141212
  Serious: No
  Sender: FDA-Public Use
  Company Number: US-BANPHARM-20131403

PATIENT
  Age: 70 Year
  Sex: Female
  Weight: 77.11 kg

DRUGS (6)
  1. ALEVE LIQUID GELS 220 MG [Suspect]
     Indication: BACK PAIN
     Dosage: 2 DF, PRN,
     Route: 048
     Dates: start: 2007
  2. CYMBALTA [Concomitant]
  3. NEXIUM 40 MG [Concomitant]
  4. LEVOTHYROXINE 50 MG [Concomitant]
  5. CRESTOR 10 MG [Concomitant]
  6. LATANOPROST OPTHALMIC SOLUTION [Concomitant]

REACTIONS (1)
  - Insomnia [Recovered/Resolved]
